FAERS Safety Report 9149602 (Version 1)
Quarter: 2013Q1

REPORT INFORMATION
  Report Type: Spontaneous
  Country: US (occurrence: None)
  Receive Date: 20130228
  Receipt Date: 20130228
  Transmission Date: 20140127
  Serious: Yes (Life-Threatening, Hospitalization)
  Sender: FDA-Public Use
  Company Number: None

PATIENT
  Sex: Male
  Weight: 59.88 kg

DRUGS (1)
  1. DICLOFENAC [Suspect]
     Indication: ANKYLOSING SPONDYLITIS
     Dosage: 75 MG 2-DAILY ORAL
     Route: 048

REACTIONS (1)
  - Myocardial infarction [None]
